FAERS Safety Report 4815143-8 (Version None)
Quarter: 2005Q4

REPORT INFORMATION
  Report Type: 
  Country: None (occurrence: None)
  Receive Date: 20051027
  Receipt Date: 20051017
  Transmission Date: 20060501
  Serious: Yes (Other)
  Sender: FDA-Public Use
  Company Number: 218727

PATIENT
  Age: 15 Year
  Sex: Male

DRUGS (1)
  1. NUTROPIN AQ [Suspect]
     Indication: GROWTH HORMONE DEFICIENCY
     Dosage: 0.3ML, QD
     Dates: start: 20040301

REACTIONS (4)
  - ARRHYTHMIA [None]
  - CHEST PAIN [None]
  - MUSCLE STRAIN [None]
  - PAIN [None]
